FAERS Safety Report 5105654-2 (Version None)
Quarter: 2006Q3

REPORT INFORMATION
  Report Type: 
  Country: None (occurrence: None)
  Receive Date: 20060915
  Receipt Date: 20060216
  Transmission Date: 20061208
  Serious: Yes (Other)
  Sender: FDA-Public Use
  Company Number: GB-AVENTIS-200610971EU

PATIENT
  Age: 30 Year
  Sex: Female
  Weight: 60 kg

DRUGS (6)
  1. CLEXANE [Suspect]
     Indication: IN VITRO FERTILISATION
     Route: 058
     Dates: start: 20060110, end: 20060216
  2. CLEXANE [Suspect]
     Indication: PREGNANCY
     Route: 058
     Dates: start: 20060110, end: 20060216
  3. ASPIRIN [Concomitant]
     Indication: PREGNANCY
     Dates: start: 20060110
  4. DEXAMETHASONE TAB [Concomitant]
     Dates: start: 20060110
  5. CYCLOGEST [Concomitant]
     Dates: start: 20050110
  6. FOLIC ACID [Concomitant]
     Dates: start: 20060110

REACTIONS (5)
  - ABORTION SPONTANEOUS [None]
  - CAESAREAN SECTION [None]
  - DRUG EXPOSURE DURING PREGNANCY [None]
  - TWIN PREGNANCY [None]
  - VAGINAL HAEMORRHAGE [None]
